FAERS Safety Report 17282885 (Version 1)
Quarter: 2020Q1

REPORT INFORMATION
  Report Type: Spontaneous
  Country: US (occurrence: US)
  Receive Date: 20191230
  Receipt Date: 20191230
  Transmission Date: 20200409
  Serious: No
  Sender: FDA-Public Use
  Company Number: None

PATIENT
  Age: 52 Year
  Sex: Female

DRUGS (1)
  1. HUMIRA [Suspect]
     Active Substance: ADALIMUMAB
     Route: 058
     Dates: start: 20190827

REACTIONS (3)
  - Incorrect dose administered by device [None]
  - Syringe issue [None]
  - Drug delivery system malfunction [None]

NARRATIVE: CASE EVENT DATE: 20191224
